FAERS Safety Report 9415339 (Version 2)
Quarter: 2013Q3

REPORT INFORMATION
  Report Type: Report from Study
  Country: CH (occurrence: CH)
  Receive Date: 20130723
  Receipt Date: 20130808
  Transmission Date: 20140515
  Serious: Yes (Life-Threatening)
  Sender: FDA-Public Use
  Company Number: CH-MILLENNIUM PHARMACEUTICALS, INC.-2013-05523

PATIENT
  Sex: 0

DRUGS (5)
  1. VELCADE [Suspect]
     Indication: PLASMA CELL MYELOMA
     Dosage: 2.1 MG, UNK
     Route: 058
     Dates: start: 20130611, end: 20130712
  2. MELPHALAN [Suspect]
     Indication: PLASMA CELL MYELOMA
     Dosage: 14 MG, UNK
     Route: 048
     Dates: start: 20130611, end: 20130614
  3. PREDNISONE [Suspect]
     Indication: PLASMA CELL MYELOMA
     Dosage: 100 MG, UNK
     Route: 048
     Dates: start: 20130611, end: 20130614
  4. ZOVIRAX                            /00587301/ [Concomitant]
     Dosage: 500 MG, BID
     Route: 048
  5. NOPIL [Concomitant]
     Indication: PLASMA CELL MYELOMA
     Dosage: UNK, 2/WEEK
     Route: 048
     Dates: start: 20130611, end: 201307

REACTIONS (1)
  - Neutropenia [Recovered/Resolved]
